FAERS Safety Report 25075847 (Version 1)
Quarter: 2025Q1

REPORT INFORMATION
  Report Type: Spontaneous
  Country: FR (occurrence: FR)
  Receive Date: 20250313
  Receipt Date: 20250313
  Transmission Date: 20250409
  Serious: Yes (Disabling, Other)
  Sender: GLAXOSMITHKLINE
  Company Number: FR-GSK-FR2025EME029583

PATIENT

DRUGS (3)
  1. LAMICTAL [Suspect]
     Active Substance: LAMOTRIGINE
     Indication: Epilepsy
  2. LAMICTAL [Suspect]
     Active Substance: LAMOTRIGINE
     Indication: Bipolar disorder
  3. LAMICTAL [Suspect]
     Active Substance: LAMOTRIGINE
     Indication: Depression

REACTIONS (8)
  - Blindness [Unknown]
  - Internal haemorrhage [Unknown]
  - General physical health deterioration [Unknown]
  - Vertigo [Unknown]
  - Vomiting [Unknown]
  - Pain [Not Recovered/Not Resolved]
  - Rash [Unknown]
  - Product prescribing error [Unknown]
